FAERS Safety Report 10319583 (Version 2)
Quarter: 2014Q3

REPORT INFORMATION
  Report Type: Other
  Country: US (occurrence: US)
  Receive Date: 20140719
  Receipt Date: 20140719
  Transmission Date: 20150326
  Serious: No
  Sender: FDA-Public Use
  Company Number: US-GSKPPD-2014GSK010064

PATIENT
  Sex: Female
  Weight: 126.21 kg

DRUGS (1)
  1. AVANDIA [Suspect]
     Active Substance: ROSIGLITAZONE MALEATE
     Indication: DIABETES MELLITUS
     Route: 048
     Dates: start: 20051005, end: 20070522

REACTIONS (2)
  - Mental disability [None]
  - Fracture [None]

NARRATIVE: CASE EVENT DATE: 20040519
